FAERS Safety Report 15636270 (Version 1)
Quarter: 2018Q4

REPORT INFORMATION
  Report Type: Report from Study
  Country: None (occurrence: BR)
  Receive Date: 20181120
  Receipt Date: 20181120
  Transmission Date: 20190205
  Serious: Yes (Other)
  Sender: FDA-Public Use
  Company Number: BR-ABBVIE-18K-020-2556055-00

PATIENT
  Sex: Female

DRUGS (1)
  1. HUMIRA [Suspect]
     Active Substance: ADALIMUMAB
     Indication: RHEUMATOID ARTHRITIS
     Route: 058

REACTIONS (8)
  - Epistaxis [Unknown]
  - Dry skin [Unknown]
  - Dry mouth [Unknown]
  - Sensitivity to weather change [Unknown]
  - Arthritis [Unknown]
  - Tongue dry [Unknown]
  - Influenza [Unknown]
  - Mobility decreased [Unknown]
